FAERS Safety Report 9666234 (Version 1)
Quarter: 2013Q4

REPORT INFORMATION
  Report Type: Report from Study
  Country: FR (occurrence: FR)
  Receive Date: 20131104
  Receipt Date: 20131104
  Transmission Date: 20140711
  Serious: Yes (Hospitalization)
  Sender: FDA-Public Use
  Company Number: FR-ASTELLAS-2013EU009325

PATIENT
  Age: 68 Year
  Sex: Male
  Weight: 84 kg

DRUGS (7)
  1. ENZALUTAMIDE [Suspect]
     Indication: PROSTATE CANCER
     Dosage: 160 MG/DAY, UID/QD
     Route: 048
     Dates: start: 20130716, end: 20130821
  2. ENZALUTAMIDE [Suspect]
     Dosage: 160 MG/DAY, UID/QD
     Route: 048
     Dates: start: 20130829
  3. ZYMAD [Concomitant]
     Indication: VITAMIN SUPPLEMENTATION
     Dosage: 200000 UL, OTHER
     Route: 048
     Dates: start: 2011
  4. SERETIDE [Concomitant]
     Indication: RENAL FAILURE
     Dosage: 250 UG, OTHER
     Route: 048
     Dates: start: 2011
  5. COTRIATEC [Concomitant]
     Indication: HYPERTENSION
     Dosage: 1 DF, OTHER
     Route: 048
     Dates: start: 2011
  6. AMAREL [Concomitant]
     Indication: DIABETES MELLITUS
     Dosage: 2 MG, UNKNOWN/D
     Route: 065
     Dates: start: 2011
  7. GLUCOPHAGE [Concomitant]
     Indication: DIABETES MELLITUS
     Dosage: 850 MG, UNKNOWN/D
     Route: 065
     Dates: start: 2011

REACTIONS (3)
  - General physical health deterioration [Recovering/Resolving]
  - Bacteraemia [Recovering/Resolving]
  - Arrhythmia [Recovering/Resolving]
